FAERS Safety Report 16818292 (Version 1)
Quarter: 2019Q3

REPORT INFORMATION
  Report Type: Spontaneous
  Country: IT (occurrence: IT)
  Receive Date: 20190917
  Receipt Date: 20190917
  Transmission Date: 20191005
  Serious: Yes (Other)
  Sender: FDA-Public Use
  Company Number: IT-ALLERGAN-1937659US

PATIENT
  Sex: Female
  Weight: 53 kg

DRUGS (1)
  1. FOSFOMYCIN TROMETHAMINE - BP [Suspect]
     Active Substance: FOSFOMYCIN TROMETHAMINE
     Indication: CYSTITIS
     Dosage: 3 G, CYCLIC
     Route: 048
     Dates: start: 20190825, end: 20190827

REACTIONS (4)
  - Vulvovaginal inflammation [Not Recovered/Not Resolved]
  - Overdose [Unknown]
  - Abdominal pain [Not Recovered/Not Resolved]
  - Dysentery [Not Recovered/Not Resolved]

NARRATIVE: CASE EVENT DATE: 20190826
